FAERS Safety Report 14244447 (Version 3)
Quarter: 2018Q4

REPORT INFORMATION
  Report Type: Spontaneous
  Country: JP (occurrence: JP)
  Receive Date: 20171201
  Receipt Date: 20181017
  Transmission Date: 20190204
  Serious: Yes (Death, Other)
  Sender: FDA-Public Use
  Company Number: JP-INCYTE CORPORATION-2016IN007635

PATIENT

DRUGS (1)
  1. JAKAVI [Suspect]
     Active Substance: RUXOLITINIB
     Indication: MYELOFIBROSIS
     Dosage: 2.5 MG, QD
     Route: 048
     Dates: start: 20160719, end: 201702

REACTIONS (4)
  - Anaemia [Unknown]
  - Haemoglobin decreased [Unknown]
  - Graft versus host disease [Unknown]
  - Myelofibrosis [Fatal]
